FAERS Safety Report 15366559 (Version 3)
Quarter: 2018Q4

REPORT INFORMATION
  Report Type: Spontaneous
  Country: US (occurrence: US)
  Receive Date: 20180910
  Receipt Date: 20181012
  Transmission Date: 20190204
  Serious: No
  Sender: FDA-Public Use
  Company Number: US-SA-2018SA253867

PATIENT
  Age: 65 Year
  Sex: Male
  Weight: 95.25 kg

DRUGS (3)
  1. DUPIXENT [Suspect]
     Active Substance: DUPILUMAB
     Dosage: 300 MG, QOW
     Dates: start: 20180724, end: 20180724
  2. HYDROXYZINE HCL [Concomitant]
     Active Substance: HYDROXYZINE HYDROCHLORIDE
     Indication: PRURITUS
     Dosage: UNK UNK, PRN
     Dates: start: 20180105
  3. DUPIXENT [Suspect]
     Active Substance: DUPILUMAB
     Indication: DERMATITIS ATOPIC
     Dosage: 600 MG, 1X
     Dates: start: 20180716

REACTIONS (5)
  - Skin burning sensation [Unknown]
  - Skin exfoliation [Unknown]
  - Pruritus [Recovered/Resolved]
  - Rash [Recovered/Resolved]
  - Thermal burn [Recovered/Resolved]

NARRATIVE: CASE EVENT DATE: 20180716
